FAERS Safety Report 5761878-2 (Version None)
Quarter: 2008Q2

REPORT INFORMATION
  Report Type: 
  Country: None (occurrence: None)
  Receive Date: 20080603
  Receipt Date: 20080519
  Transmission Date: 20081010
  Serious: Yes (Death)
  Sender: FDA-Public Use
  Company Number: 2008AL005537

PATIENT
  Sex: Female

DRUGS (2)
  1. DIGOXIN [Suspect]
     Indication: ANAPHYLACTIC REACTION
     Dosage: 0.125 MG PO DAILY
     Route: 048
  2. DIGOXIN [Suspect]
     Indication: ATRIAL FIBRILLATION
     Dosage: 0.125 MG PO DAILY
     Route: 048

REACTIONS (7)
  - CONFUSIONAL STATE [None]
  - FALL [None]
  - NERVOUSNESS [None]
  - PARAESTHESIA [None]
  - PNEUMONIA [None]
  - RASH MACULO-PAPULAR [None]
  - VISION BLURRED [None]
